FAERS Safety Report 7103777-X (Version None)
Quarter: 2010Q4

REPORT INFORMATION
  Report Type: 
  Country: None (occurrence: None)
  Receive Date: 20101115
  Receipt Date: 20101104
  Transmission Date: 20110411
  Serious: No
  Sender: FDA-Public Use
  Company Number: JP-ROCHE-724147

PATIENT
  Sex: Male
  Weight: 51 kg

DRUGS (28)
  1. AVASTIN [Suspect]
     Indication: RECTAL CANCER METASTATIC
     Dosage: ROUTE: INTRAVENOUS DRIP, FORM: INJECTION
     Route: 041
     Dates: start: 20091215
  2. XELODA [Suspect]
     Indication: RECTAL CANCER METASTATIC
     Dosage: NOTE: 2 WEEKS ADMINISTRATION FOLLOWED BY 1 WEEK REST.
     Route: 048
     Dates: start: 20091215, end: 20100104
  3. XELODA [Suspect]
     Dosage: 2 WEEKS ADMINISTRATION FOLLOWED BY 1 WEEK REST
     Route: 048
     Dates: start: 20100112, end: 20100126
  4. XELODA [Suspect]
     Dosage: 2 WEEKS ADMINISTRATION FOLLOWED BY 1 WEEK REST
     Route: 048
     Dates: start: 20100223
  5. ELPLAT [Suspect]
     Indication: RECTAL CANCER METASTATIC
     Dosage: DOSAGE IS UNCERTAIN.
     Route: 041
     Dates: start: 20091215, end: 20100105
  6. ELPLAT [Suspect]
     Route: 041
     Dates: start: 20100126, end: 20100223
  7. ELPLAT [Suspect]
     Route: 041
     Dates: start: 20100323, end: 20100511
  8. ELPLAT [Suspect]
     Route: 041
     Dates: start: 20100608, end: 20100817
  9. ELPLAT [Suspect]
     Route: 041
     Dates: start: 20100706, end: 20100817
  10. ELPLAT [Suspect]
     Route: 041
     Dates: start: 20100921
  11. GRANISETRON HYDROCHLORIDE [Concomitant]
     Route: 041
     Dates: start: 20091215
  12. DECADRON [Concomitant]
     Route: 041
     Dates: start: 20091215
  13. PYDOXAL [Concomitant]
     Route: 048
  14. LEUCON [Concomitant]
     Route: 048
  15. MEXITIL [Concomitant]
     Route: 048
  16. LANIRAPID [Concomitant]
     Route: 048
  17. TAKEPRON [Concomitant]
     Route: 048
  18. FLIVAS [Concomitant]
     Route: 048
  19. RENIVACE [Concomitant]
     Route: 048
  20. NORVASC [Concomitant]
     Route: 048
  21. TOUGHMAC [Concomitant]
     Route: 048
  22. BUSCOPAN [Concomitant]
     Route: 048
  23. LOPEMIN [Concomitant]
     Route: 048
  24. MIYA BM [Concomitant]
     Dosage: DOSAGE: MINUTE GRAIN
     Route: 048
  25. NAUZELIN [Concomitant]
     Route: 048
  26. CELCOX [Concomitant]
     Route: 048
  27. ALLEGRA [Concomitant]
     Route: 048
  28. POSTERISAN [Concomitant]
     Dosage: DOSAGE UNCERTAIN
     Route: 061

REACTIONS (1)
  - SPLENIC INFARCTION [None]
